FAERS Safety Report 6851000-3 (Version None)
Quarter: 2010Q3

REPORT INFORMATION
  Report Type: 
  Country: None (occurrence: None)
  Receive Date: 20100716
  Receipt Date: 20100705
  Transmission Date: 20110219
  Serious: Yes (Disabling, Other)
  Sender: FDA-Public Use
  Company Number: FR-ELI_LILLY_AND_COMPANY-FR201007000840

PATIENT
  Sex: Female

DRUGS (6)
  1. ALIMTA [Suspect]
     Indication: PLEURAL MESOTHELIOMA
     Dosage: UNK, UNKNOWN
     Route: 042
     Dates: start: 20070501, end: 20071001
  2. ALIMTA [Suspect]
     Dosage: 825 MG, EVERY 3 WEEKS
     Route: 042
     Dates: start: 20100203, end: 20100308
  3. CISPLATIN [Concomitant]
     Indication: PLEURAL MESOTHELIOMA
     Dosage: UNK, UNKNOWN
     Route: 042
     Dates: start: 20070501, end: 20071001
  4. CARBOPLATIN [Concomitant]
     Indication: PLEURAL MESOTHELIOMA
     Dosage: 320 MG, EVERY 3 WEEKS
     Route: 042
     Dates: start: 20100203, end: 20100308
  5. LERCAN [Concomitant]
     Dosage: UNK, UNKNOWN
     Route: 065
  6. ACETAMINOPHEN [Concomitant]
     Dosage: UNK, AS NEEDED
     Route: 065

REACTIONS (3)
  - DEEP VEIN THROMBOSIS [None]
  - DIPLOPIA [None]
  - RENAL FAILURE CHRONIC [None]
